FAERS Safety Report 10272972 (Version 1)
Quarter: 2014Q3

REPORT INFORMATION
  Report Type: Spontaneous
  Country: NL (occurrence: NL)
  Receive Date: 20140702
  Receipt Date: 20140702
  Transmission Date: 20150326
  Serious: Yes (Hospitalization)
  Sender: FDA-Public Use
  Company Number: NL-ELI_LILLY_AND_COMPANY-NL201406008544

PATIENT
  Age: 75 Year
  Sex: Male

DRUGS (9)
  1. ALIMTA [Suspect]
     Active Substance: PEMETREXED DISODIUM
     Indication: LUNG CANCER METASTATIC
     Dosage: 1000 MG, CYCLICAL EVERY 3 WEEKS
     Route: 042
     Dates: start: 201401
  2. FRAXODI [Concomitant]
     Active Substance: NADROPARIN CALCIUM
     Dosage: 8 ML, QD
  3. PREDNISON [Concomitant]
     Active Substance: PREDNISONE
     Dosage: 30 MG, QD
  4. MOVICOLON [Concomitant]
     Active Substance: POLYETHYLENE GLYCOL 3350\POTASSIUM CHLORIDE\SODIUM BICARBONATE\SODIUM CHLORIDE
     Dosage: 1 DF, PRN
  5. FOLIUMZUUR [Concomitant]
     Active Substance: FOLIC ACID
     Dosage: 1 DF, UNKNOWN
  6. OXYCODON [Concomitant]
     Active Substance: OXYCODONE
     Dosage: 5 MG, PRN
  7. FENTANYL. [Concomitant]
     Active Substance: FENTANYL
     Dosage: 50 UG, ONCE EVERY 3 DAYS
  8. FORADIL [Concomitant]
     Active Substance: FORMOTEROL FUMARATE
  9. HYDROXOCOBALAMINE [Concomitant]
     Dosage: UNK, ONCE EVERY 9 WEEKS

REACTIONS (3)
  - Peripheral sensorimotor neuropathy [Recovering/Resolving]
  - Paraesthesia [Recovering/Resolving]
  - Muscular weakness [Recovering/Resolving]

NARRATIVE: CASE EVENT DATE: 201404
